FAERS Safety Report 7128808-2 (Version None)
Quarter: 2010Q4

REPORT INFORMATION
  Report Type: 
  Country: None (occurrence: None)
  Receive Date: 20101130
  Receipt Date: 20101117
  Transmission Date: 20110411
  Serious: Yes (Hospitalization, Other)
  Sender: FDA-Public Use
  Company Number: US-ELI_LILLY_AND_COMPANY-US201011005279

PATIENT
  Sex: Female

DRUGS (3)
  1. HUMALOG [Suspect]
     Indication: TYPE 2 DIABETES MELLITUS
     Dosage: UNK, AS NEEDED
  2. HUMALOG [Suspect]
     Dosage: UNK, AS NEEDED
  3. LANTUS [Concomitant]
     Dosage: UNK, EACH MORNING

REACTIONS (12)
  - CATARACT [None]
  - DEVICE OCCLUSION [None]
  - EYE DISORDER [None]
  - EYE HAEMORRHAGE [None]
  - EYE INJURY [None]
  - GLAUCOMA [None]
  - GLAUCOMA TRAUMATIC [None]
  - MYOCARDIAL INFARCTION [None]
  - MYOPIA [None]
  - OPTIC ISCHAEMIC NEUROPATHY [None]
  - STENT PLACEMENT [None]
  - VISUAL IMPAIRMENT [None]
